FAERS Safety Report 9433296 (Version 1)
Quarter: 2013Q3

REPORT INFORMATION
  Report Type: Spontaneous
  Country: US (occurrence: US)
  Receive Date: 20130731
  Receipt Date: 20130731
  Transmission Date: 20140515
  Serious: Yes (Other)
  Sender: FDA-Public Use
  Company Number: US-WATSON-2013-13268

PATIENT
  Age: 18 Year
  Sex: Female
  Weight: 59 kg

DRUGS (1)
  1. BUTALBITAL, ACETAMINOPHEN, CAFFEINE (WATSON) [Suspect]
     Indication: HEADACHE
     Dosage: ONE TABLET EVERY SIX HOURS
     Route: 048
     Dates: start: 20130714

REACTIONS (4)
  - Substance abuser [Not Recovered/Not Resolved]
  - Tremor [Not Recovered/Not Resolved]
  - Restlessness [Not Recovered/Not Resolved]
  - Fatigue [Not Recovered/Not Resolved]
